FAERS Safety Report 10708614 (Version 4)
Quarter: 2016Q1

REPORT INFORMATION
  Report Type: Report from Study
  Country: DE (occurrence: DE)
  Receive Date: 20150113
  Receipt Date: 20160314
  Transmission Date: 20160525
  Serious: Yes (Death, Hospitalization, Other)
  Sender: FDA-Public Use
  Company Number: DE-ACTELION-A-US2015-111114

PATIENT
  Age: 87 Year
  Sex: Female
  Weight: 61 kg

DRUGS (12)
  1. TORASEMID [Concomitant]
     Active Substance: TORSEMIDE
  2. RESTEX [Concomitant]
     Active Substance: BENSERAZIDE
  3. OMEP [Concomitant]
     Active Substance: OMEPRAZOLE
  4. VENTAVIS [Suspect]
     Active Substance: ILOPROST
     Indication: PULMONARY ARTERIAL HYPERTENSION
     Dosage: 2.5 MCG, 6/D
     Route: 055
     Dates: start: 20140924, end: 201412
  5. VERAPAMIL [Concomitant]
     Active Substance: VERAPAMIL HYDROCHLORIDE
  6. TAXOFIT [Concomitant]
  7. ADCIRCA [Concomitant]
     Active Substance: TADALAFIL
     Indication: PRODUCT USED FOR UNKNOWN INDICATION
     Dosage: 20 MG, BID
     Route: 065
  8. XARELTO [Interacting]
     Active Substance: RIVAROXABAN
     Indication: PRODUCT USED FOR UNKNOWN INDICATION
     Dosage: 10 MG, QD (AT NIGHT)
     Route: 065
  9. TRACLEER [Concomitant]
     Active Substance: BOSENTAN
     Indication: PULMONARY ARTERIAL HYPERTENSION
  10. L-TRYPTOPHAN [Concomitant]
     Active Substance: TRYPTOPHAN
  11. ANTISTAX [Concomitant]
     Active Substance: VITIS VINIFERA FLOWERING TOP
  12. VENLAFAXINE [Concomitant]
     Active Substance: VENLAFAXINE HYDROCHLORIDE

REACTIONS (23)
  - Cardiac failure [Fatal]
  - Tooth disorder [Unknown]
  - Decreased appetite [Unknown]
  - Vaginal haemorrhage [Unknown]
  - Spinal compression fracture [Unknown]
  - Visual acuity reduced [Unknown]
  - Tooth fracture [Unknown]
  - Oral disorder [Unknown]
  - Ageusia [Unknown]
  - Nausea [Unknown]
  - Atrophic vulvovaginitis [Unknown]
  - Spinal compression fracture [Unknown]
  - Cardiac flutter [Unknown]
  - Haemorrhage [Unknown]
  - Vaginal infection [Unknown]
  - Spinal column stenosis [Unknown]
  - Drug interaction [Unknown]
  - Dyspnoea [Unknown]
  - Vaginal disorder [Unknown]
  - Vomiting [Unknown]
  - Fall [Unknown]
  - Mucosal haemorrhage [Unknown]
  - Spondylolisthesis [Unknown]

NARRATIVE: CASE EVENT DATE: 20141126
